FAERS Safety Report 15731591 (Version 1)
Quarter: 2018Q4

REPORT INFORMATION
  Report Type: Report from Study
  Country: ZA (occurrence: ZA)
  Receive Date: 20181217
  Receipt Date: 20181217
  Transmission Date: 20190205
  Serious: Yes (Death, Other)
  Sender: FDA-Public Use
  Company Number: ZA-SAKK-2018SA340155AA

PATIENT
  Age: 52 Year
  Sex: Female

DRUGS (5)
  1. BETACOR [BETAMETHASONE] [Concomitant]
     Dosage: 5 MG, QD, AFTER BREAKFAST
     Dates: start: 20181004
  2. MAGNI SLOW [MAGNESIUM CHLORIDE] [Concomitant]
     Dosage: 10 MG, QD, AFTER BREAKFAST
     Dates: start: 20181004
  3. PURESIS [Concomitant]
     Active Substance: FUROSEMIDE
     Dosage: 40 MG, QD, AFTER BREAKFAST
     Dates: start: 20181004
  4. INSULIN GLARGINE [Suspect]
     Active Substance: INSULIN GLARGINE
     Dosage: 10 U, QD AT BEDTIME
     Dates: start: 20180929
  5. PHARMAPRESS [ENALAPRIL MALEATE] [Concomitant]
     Dosage: 5 MG, QD, AFTER BREAKFAST
     Dates: start: 20181004

REACTIONS (1)
  - Cardiac arrest [Fatal]

NARRATIVE: CASE EVENT DATE: 20181028
